FAERS Safety Report 25401234 (Version 1)
Quarter: 2025Q2

REPORT INFORMATION
  Report Type: Spontaneous
  Country: US (occurrence: None)
  Receive Date: 20250604
  Receipt Date: 20250604
  Transmission Date: 20250716
  Serious: Yes (unspecified)
  Sender: FDA-CTU
  Company Number: None

PATIENT
  Age: 73 Year
  Sex: Female
  Weight: 85.5 kg

DRUGS (2)
  1. PRILOCAINE [Suspect]
     Active Substance: PRILOCAINE
     Indication: Dental local anaesthesia
     Dates: start: 20241118, end: 20241118
  2. ARTICAINE [Suspect]
     Active Substance: ARTICAINE

REACTIONS (4)
  - Muscular weakness [None]
  - Hypoaesthesia [None]
  - Paraesthesia [None]
  - Neurotoxicity [None]

NARRATIVE: CASE EVENT DATE: 20241118
